FAERS Safety Report 7080937-8 (Version None)
Quarter: 2010Q4

REPORT INFORMATION
  Report Type: 
  Country: None (occurrence: None)
  Receive Date: 20101102
  Receipt Date: 20101102
  Transmission Date: 20110411
  Serious: Yes (Life-Threatening)
  Sender: FDA-Public Use
  Company Number: None

PATIENT
  Age: 3 Day
  Sex: Male
  Weight: 2.268 kg

DRUGS (1)
  1. ACETAMINOPHEN W/ CODEINE NO. 3 [Suspect]
     Indication: EPISIOTOMY
     Dosage: ONE OR TWO EVERY 4 --6 HRS PO
     Route: 048
     Dates: start: 20101029, end: 20101031

REACTIONS (7)
  - DRUG EXPOSURE VIA BREAST MILK [None]
  - FEEDING DISORDER NEONATAL [None]
  - FEELING COLD [None]
  - LETHARGY [None]
  - MALAISE [None]
  - MUSCLE TWITCHING [None]
  - SOMNOLENCE [None]
